FAERS Safety Report 5401303-4 (Version None)
Quarter: 2007Q3

REPORT INFORMATION
  Report Type: 
  Country: None (occurrence: None)
  Receive Date: 20070731
  Receipt Date: 20070723
  Transmission Date: 20080115
  Serious: Yes (Life-Threatening, Hospitalization)
  Sender: FDA-Public Use
  Company Number: HQWYE147019JUL07

PATIENT
  Sex: Male
  Weight: 70 kg

DRUGS (3)
  1. CEFTRIAXONE [Suspect]
     Indication: ABDOMINAL INFECTION
     Dosage: 2G DAILY
     Route: 042
     Dates: start: 20070704, end: 20070706
  2. OMEPRAZOLE [Concomitant]
  3. METRONIDAZOLE [Concomitant]
     Indication: ABDOMINAL INFECTION
     Route: 042
     Dates: start: 20070704, end: 20070706

REACTIONS (2)
  - LEFT VENTRICULAR FAILURE [None]
  - SEPSIS [None]
